FAERS Safety Report 10263044 (Version 2)
Quarter: 2014Q2

REPORT INFORMATION
  Report Type: Report from Study
  Country: US (occurrence: US)
  Receive Date: 20140626
  Receipt Date: 20140626
  Transmission Date: 20141212
  Serious: Yes (Death)
  Sender: FDA-Public Use
  Company Number: US-MYLANLABS-2013S1028196

PATIENT
  Age: 45 Year
  Sex: Male

DRUGS (5)
  1. CLOZAPINE TABLETS [Suspect]
     Dates: start: 2011, end: 2013
  2. TEGRETOL [Concomitant]
     Route: 048
  3. LORAZEPAM [Concomitant]
     Route: 048
  4. TRAZODONE [Concomitant]
     Route: 048
  5. ESKALITH CR [Concomitant]
     Route: 048

REACTIONS (1)
  - Cardiac death [Fatal]
